FAERS Safety Report 8958175 (Version 1)
Quarter: 2012Q4

REPORT INFORMATION
  Report Type: 
  Country: US (occurrence: US)
  Receive Date: 20121211
  Receipt Date: 20121211
  Transmission Date: 20130627
  Serious: No
  Sender: FDA-Public Use
  Company Number: US-ASTRAZENECA-2012SE90138

PATIENT
  Age: 33 Year
  Sex: Female
  Weight: 58.1 kg

DRUGS (6)
  1. SEROQUEL [Suspect]
     Indication: NERVOUSNESS
     Route: 048
     Dates: start: 200609, end: 200610
  2. CYMBALTA [Concomitant]
     Indication: DEPRESSION
  3. ATIVAN [Concomitant]
     Indication: ANXIETY
  4. DARVOCET [Concomitant]
     Indication: OVARIAN CYST
  5. VICODIN [Concomitant]
     Indication: BACK PAIN
  6. TYLENOL PM OTC [Concomitant]
     Indication: PAIN

REACTIONS (2)
  - Akathisia [Unknown]
  - Off label use [Unknown]
